FAERS Safety Report 8051881-4 (Version None)
Quarter: 2012Q1

REPORT INFORMATION
  Report Type: 
  Country: None (occurrence: None)
  Receive Date: 20120111
  Receipt Date: 20111227
  Transmission Date: 20120608
  Serious: Yes (Death, Life-Threatening)
  Sender: FDA-Public Use
  Company Number: 1000025399

PATIENT
  Age: 81 Year
  Sex: Male
  Weight: 62 kg

DRUGS (11)
  1. VENTOLAIR (BECLOMETASONE DIPROPIONATE) (BECLOMETASONE DIPROPIONATE) [Concomitant]
  2. HALDOL (HALOPERIDOL DECANOATE) (HALOPERIDOL DECANOATE) [Concomitant]
  3. OMEPRAZOLE [Concomitant]
  4. RAMIPRIL [Concomitant]
  5. FUROSEMIDE [Concomitant]
  6. OXYGEN (OXYGEN) (OXYGEN) [Concomitant]
  7. BECLOMETHASONE DIPROPIONATE [Concomitant]
  8. ROFLUMILAST (ROFLUMILAST) (TABLETS) [Suspect]
     Indication: CHRONIC OBSTRUCTIVE PULMONARY DISEASE
     Dosage: 500 MCG (500 MCG, 1 IN 1 D), ORAL
     Route: 048
     Dates: start: 20110726
  9. ROFLUMILAST (ROFLUMILAST) (TABLETS) [Suspect]
     Indication: RESPIRATORY FAILURE
     Dosage: 500 MCG (500 MCG, 1 IN 1 D), ORAL
     Route: 048
     Dates: start: 20110726
  10. FORADIL (FORMOTEROL FUMARATE) (FORMOTEROL FUMARATE) [Concomitant]
  11. SPIRIVA (TIOTROPIUM BROMIDE) (TIOTROPIUM BROMIDE) [Concomitant]

REACTIONS (9)
  - COMPLETED SUICIDE [None]
  - EMPHYSEMA [None]
  - DEPRESSION [None]
  - DYSPNOEA [None]
  - HYPOKALAEMIA [None]
  - CONDITION AGGRAVATED [None]
  - ARTHRALGIA [None]
  - LUNG INFILTRATION [None]
  - METABOLIC ALKALOSIS [None]
